FAERS Safety Report 5569916-7 (Version None)
Quarter: 2007Q4

REPORT INFORMATION
  Report Type: 
  Country: None (occurrence: None)
  Receive Date: 20071220
  Receipt Date: 20071210
  Transmission Date: 20080405
  Serious: Yes (Hospitalization, Other)
  Sender: FDA-Public Use
  Company Number: BR-ABBOTT-07P-020-0420892-00

PATIENT
  Sex: Female
  Weight: 63 kg

DRUGS (5)
  1. HUMIRA [Suspect]
     Indication: RHEUMATOID ARTHRITIS
     Route: 058
     Dates: start: 20051101, end: 20071001
  2. HUMIRA [Suspect]
     Dates: start: 20071001
  3. METAMIZOLE SODIUM [Concomitant]
     Indication: DRUG USE FOR UNKNOWN INDICATION
     Route: 048
  4. DEXAMETHASONE TAB [Concomitant]
     Indication: DRUG USE FOR UNKNOWN INDICATION
     Route: 048
  5. PROPOLIS [Concomitant]
     Indication: DRUG USE FOR UNKNOWN INDICATION
     Route: 048

REACTIONS (9)
  - BENIGN LUNG NEOPLASM [None]
  - CHEST PAIN [None]
  - COUGH [None]
  - DRUG DOSE OMISSION [None]
  - IMPAIRED HEALING [None]
  - INFLUENZA [None]
  - LUNG DISORDER [None]
  - OEDEMA [None]
  - PLEURAL EFFUSION [None]
